FAERS Safety Report 11679672 (Version 3)
Quarter: 2015Q4

REPORT INFORMATION
  Report Type: Spontaneous
  Country: US (occurrence: US)
  Receive Date: 20151027
  Receipt Date: 20151110
  Transmission Date: 20160304
  Serious: No
  Sender: FDA-Public Use
  Company Number: US-ELI_LILLY_AND_COMPANY-US201007005500

PATIENT
  Age: 64 Year
  Sex: Female

DRUGS (13)
  1. FORTEO [Suspect]
     Active Substance: TERIPARATIDE
     Dosage: 20 UG, QD
     Route: 065
  2. FORTEO [Suspect]
     Active Substance: TERIPARATIDE
     Dosage: 20 UG, QD
  3. FORTEO [Suspect]
     Active Substance: TERIPARATIDE
     Dosage: 20 UG, QD
  4. FORTEO [Suspect]
     Active Substance: TERIPARATIDE
     Dosage: 20 UG, QD
     Route: 065
  5. FORTEO [Suspect]
     Active Substance: TERIPARATIDE
     Dosage: 20 UG, QD
     Route: 065
  6. FORTEO [Suspect]
     Active Substance: TERIPARATIDE
     Dosage: 20 UG, QD
     Route: 065
  7. FORTEO [Suspect]
     Active Substance: TERIPARATIDE
     Dosage: 20 UG, QD
  8. FORTEO [Suspect]
     Active Substance: TERIPARATIDE
     Dosage: 20 UG, QD
  9. FORTEO [Suspect]
     Active Substance: TERIPARATIDE
     Indication: OSTEOPOROSIS
     Dosage: 20 UG, QD
     Route: 065
     Dates: start: 20100713
  10. FORTEO [Suspect]
     Active Substance: TERIPARATIDE
     Dosage: 20 UG, QD
     Route: 065
  11. FORTEO [Suspect]
     Active Substance: TERIPARATIDE
     Dosage: 20 UG, QD
  12. FORTEO [Suspect]
     Active Substance: TERIPARATIDE
     Dosage: 20 UG, QD
     Route: 065
  13. FORTEO [Suspect]
     Active Substance: TERIPARATIDE
     Dosage: 20 UG, QD
     Route: 065

REACTIONS (42)
  - Intraocular pressure increased [Unknown]
  - Hot flush [Unknown]
  - Sleep disorder [Unknown]
  - Injection site erythema [Unknown]
  - Rash pruritic [Recovered/Resolved]
  - Asthma [Unknown]
  - Pruritus [Not Recovered/Not Resolved]
  - Skin exfoliation [Unknown]
  - Dyspnoea [Not Recovered/Not Resolved]
  - Arthralgia [Recovering/Resolving]
  - Rash [Recovered/Resolved]
  - Oropharyngeal pain [Unknown]
  - Stress [Unknown]
  - Weight increased [Unknown]
  - Pruritus generalised [Unknown]
  - Facial pain [Unknown]
  - Rhinorrhoea [Unknown]
  - Rash erythematous [Recovered/Resolved]
  - Chest pain [Unknown]
  - Urticaria [Recovered/Resolved]
  - Headache [Not Recovered/Not Resolved]
  - Urinary tract infection [Unknown]
  - Injection site bruising [Not Recovered/Not Resolved]
  - Sneezing [Unknown]
  - Poor peripheral circulation [Unknown]
  - Waist circumference increased [Unknown]
  - Injection site urticaria [Recovered/Resolved]
  - Cough [Not Recovered/Not Resolved]
  - Muscular weakness [Recovering/Resolving]
  - Dysphonia [Not Recovered/Not Resolved]
  - Skin disorder [Not Recovered/Not Resolved]
  - Injection site pain [Not Recovered/Not Resolved]
  - Nausea [Unknown]
  - Muscle spasms [Not Recovered/Not Resolved]
  - Throat irritation [Unknown]
  - Dry skin [Unknown]
  - Pain [Unknown]
  - Injection site urticaria [Unknown]
  - Miliaria [Recovered/Resolved]
  - Acne [Unknown]
  - Rash macular [Recovered/Resolved]
  - Depression [Unknown]

NARRATIVE: CASE EVENT DATE: 201107
